FAERS Safety Report 7617251-5 (Version None)
Quarter: 2011Q3

REPORT INFORMATION
  Report Type: 
  Country: None (occurrence: None)
  Receive Date: 20110718
  Receipt Date: 20110704
  Transmission Date: 20111222
  Serious: Yes (Hospitalization)
  Sender: FDA-Public Use
  Company Number: CH-SP-2011-04663

PATIENT
  Sex: Male

DRUGS (3)
  1. AVODART [Concomitant]
     Indication: BENIGN PROSTATIC HYPERPLASIA
     Route: 048
  2. PRADIF [Concomitant]
     Indication: BENIGN PROSTATIC HYPERPLASIA
     Route: 048
  3. IMMUCYST [Suspect]
     Indication: BLADDER TRANSITIONAL CELL CARCINOMA
     Dosage: NOT REPORTED
     Route: 043
     Dates: start: 20090101, end: 20110511

REACTIONS (6)
  - BOVINE TUBERCULOSIS [None]
  - RENAL FAILURE CHRONIC [None]
  - DYSPNOEA [None]
  - DYSURIA [None]
  - CHILLS [None]
  - PYREXIA [None]
